FAERS Safety Report 22591300 (Version 1)
Quarter: 2023Q2

REPORT INFORMATION
  Report Type: Spontaneous
  Country: US (occurrence: None)
  Receive Date: 20230610
  Receipt Date: 20230610
  Transmission Date: 20230721
  Serious: No
  Sender: FDA-Public Use
  Company Number: None

PATIENT
  Sex: Female
  Weight: 88.9 kg

DRUGS (25)
  1. IBRANCE [Suspect]
     Active Substance: PALBOCICLIB
     Indication: Breast cancer female
     Dosage: 100MG DAILY ORAL -  21DAYS ON, 7D OFF?
     Route: 050
     Dates: start: 202111
  2. AMITIZA [Concomitant]
     Active Substance: LUBIPROSTONE
  3. ANORO ELLIPTA [Concomitant]
     Active Substance: UMECLIDINIUM BROMIDE\VILANTEROL TRIFENATATE
  4. Aspirin [Concomitant]
  5. ATIVAN [Concomitant]
  6. BENADRYL [Concomitant]
     Active Substance: DIPHENHYDRAMINE HYDROCHLORIDE
  7. BENTYL [Concomitant]
     Active Substance: DICYCLOMINE HYDROCHLORIDE
  8. Claritin [Concomitant]
  9. COZAAR [Concomitant]
     Active Substance: LOSARTAN POTASSIUM
  10. CYMBALTA [Concomitant]
  11. DETROL LA [Concomitant]
     Active Substance: TOLTERODINE TARTRATE
  12. DIFLUCAN [Concomitant]
  13. FEMARA [Concomitant]
     Active Substance: LETROZOLE
  14. GLYCOLAX [Concomitant]
     Active Substance: POLYETHYLENE GLYCOL 3350
  15. HYDROCHLOROTHIAZIDE [Concomitant]
  16. KLOR-CON M20 [Concomitant]
     Active Substance: POTASSIUM CHLORIDE
  17. MACROBID [Concomitant]
     Active Substance: NITROFURANTOIN\NITROFURANTOIN MONOHYDRATE
  18. MELATONIN [Concomitant]
     Active Substance: MELATONIN
  19. NORCO [Concomitant]
     Active Substance: ACETAMINOPHEN\HYDROCODONE BITARTRATE
  20. NORVASC [Concomitant]
     Active Substance: AMLODIPINE BESYLATE
  21. PROTONIX [Concomitant]
     Active Substance: PANTOPRAZOLE SODIUM
  22. PROVENTIL HFA [Concomitant]
     Active Substance: ALBUTEROL SULFATE
  23. PYRIDIUM [Concomitant]
  24. REGLAN [Concomitant]
     Active Substance: METOCLOPRAMIDE HYDROCHLORIDE
  25. ZOFRAN [Concomitant]
     Active Substance: ONDANSETRON HYDROCHLORIDE

REACTIONS (3)
  - Pneumonia viral [None]
  - Illness [None]
  - Weight decreased [None]
